FAERS Safety Report 9818108 (Version 2)
Quarter: 2014Q1

REPORT INFORMATION
  Report Type: Spontaneous
  Country: US (occurrence: None)
  Receive Date: 20131223
  Receipt Date: 20140228
  Transmission Date: 20141002
  Serious: Yes (Other)
  Sender: FDA-Public Use
  Company Number: 222426

PATIENT
  Age: 64 Year
  Sex: Female

DRUGS (1)
  1. PICATO GEL [Suspect]
     Indication: ACTINIC KERATOSIS
     Dosage: 1 (1 IN 1 D) ALL OVER THE FACE
     Dates: start: 20130601, end: 20130603

REACTIONS (6)
  - Application site vesicles [None]
  - Application site erythema [None]
  - Application site pain [None]
  - Drug administration error [None]
  - Inappropriate schedule of drug administration [None]
  - Incorrect dose administered [None]
